FAERS Safety Report 7483057-3 (Version None)
Quarter: 2011Q2

REPORT INFORMATION
  Report Type: 
  Country: None (occurrence: None)
  Receive Date: 20110516
  Receipt Date: 20110504
  Transmission Date: 20111010
  Serious: Yes (Hospitalization, Other)
  Sender: FDA-Public Use
  Company Number: US-BAYER-2011-038387

PATIENT
  Sex: Male

DRUGS (2)
  1. KLONOPIN [Concomitant]
  2. AVELOX [Suspect]
     Indication: ANAL ABSCESS
     Dosage: 400 MG, QD
     Route: 048
     Dates: start: 20110502, end: 20110502

REACTIONS (3)
  - SUICIDAL IDEATION [None]
  - DEPRESSION [None]
  - PSYCHIATRIC SYMPTOM [None]
